FAERS Safety Report 20714416 (Version 1)
Quarter: 2022Q2

REPORT INFORMATION
  Report Type: Spontaneous
  Country: US (occurrence: None)
  Receive Date: 20220415
  Receipt Date: 20220415
  Transmission Date: 20220721
  Serious: No
  Sender: FDA-Public Use
  Company Number: None

PATIENT
  Age: 84 Year
  Sex: Female
  Weight: 59.4 kg

DRUGS (9)
  1. PROLIA [Suspect]
     Active Substance: DENOSUMAB
     Indication: Osteoporosis
     Dates: start: 20210412
  2. CARVEDILOL [Concomitant]
     Active Substance: CARVEDILOL
  3. CLONIDINE [Concomitant]
     Active Substance: CLONIDINE
  4. IRBESARTAN [Concomitant]
     Active Substance: IRBESARTAN
  5. ISRADIPINE [Concomitant]
     Active Substance: ISRADIPINE
  6. PRALUENT [Concomitant]
     Active Substance: ALIROCUMAB
  7. TORSEMIDE [Concomitant]
     Active Substance: TORSEMIDE
  8. LEVOTHYROXINE [Concomitant]
     Active Substance: LEVOTHYROXINE
  9. VITAMIN D3 [Concomitant]
     Active Substance: CHOLECALCIFEROL

REACTIONS (6)
  - Back pain [None]
  - Pain in extremity [None]
  - Insomnia [None]
  - Hypertension [None]
  - Blood test abnormal [None]
  - Therapeutic product effect incomplete [None]

NARRATIVE: CASE EVENT DATE: 20220412
